FAERS Safety Report 8861689 (Version 1)
Quarter: 2012Q4

REPORT INFORMATION
  Report Type: 
  Country: US (occurrence: US)
  Receive Date: 20121025
  Receipt Date: 20121025
  Transmission Date: 20130627
  Serious: No
  Sender: FDA-Public Use
  Company Number: US-AMGEN-USASP2012019833

PATIENT
  Age: 70 Year
  Sex: Female

DRUGS (1)
  1. ENBREL [Suspect]
     Indication: RHEUMATOID ARTHRITIS
     Dosage: 25 mg, qwk
     Dates: start: 1999

REACTIONS (9)
  - Rosacea [Recovered/Resolved]
  - Vitreous floaters [Not Recovered/Not Resolved]
  - Knee deformity [Not Recovered/Not Resolved]
  - Limb malformation [Not Recovered/Not Resolved]
  - Rheumatoid arthritis [Recovered/Resolved]
  - Oedema peripheral [Not Recovered/Not Resolved]
  - Erythema [Not Recovered/Not Resolved]
  - Infection [Recovered/Resolved]
  - Sinusitis [Recovered/Resolved]
